FAERS Safety Report 20559239 (Version 1)
Quarter: 2022Q1

REPORT INFORMATION
  Report Type: Spontaneous
  Country: CN (occurrence: CN)
  Receive Date: 20220307
  Receipt Date: 20220307
  Transmission Date: 20220423
  Serious: Yes (Hospitalization)
  Sender: FDA-Public Use
  Company Number: CN-PFIZER INC-202200316826

PATIENT
  Age: 58 Year
  Sex: Male

DRUGS (1)
  1. SUTENT [Suspect]
     Active Substance: SUNITINIB MALATE
     Indication: Gastrointestinal stromal tumour
     Dosage: 50 MG, 1X/DAY
     Route: 048
     Dates: start: 20210901, end: 20211213

REACTIONS (12)
  - Pruritus genital [Recovering/Resolving]
  - Genital erythema [Recovering/Resolving]
  - Genital swelling [Recovering/Resolving]
  - Scrotum erosion [Recovering/Resolving]
  - Scrotal pain [Recovering/Resolving]
  - Scrotal ulcer [Recovering/Resolving]
  - Rash [Recovering/Resolving]
  - Penile haemorrhage [Unknown]
  - Scrotal haemorrhage [Unknown]
  - Haemorrhage [Unknown]
  - Nail discolouration [Unknown]
  - Skin exfoliation [Unknown]

NARRATIVE: CASE EVENT DATE: 20211101
